FAERS Safety Report 7701893-2 (Version None)
Quarter: 2011Q3

REPORT INFORMATION
  Report Type: 
  Country: None (occurrence: None)
  Receive Date: 20110822
  Receipt Date: 20110818
  Transmission Date: 20111222
  Serious: Yes (Hospitalization)
  Sender: FDA-Public Use
  Company Number: CHPA2011US11062

PATIENT
  Age: 68 Year
  Sex: Female

DRUGS (4)
  1. PREVACID 24 HR [Suspect]
     Indication: CHEMOTHERAPY
  2. XELODA [Concomitant]
     Dosage: UNK, UNK
  3. XELODA [Concomitant]
     Indication: COLON CANCER
     Dosage: 500 MG, 5 TIMES A DAY, EVERY OTHER WEEK
     Route: 048
     Dates: start: 20110801
  4. PREVACID 24 HR [Suspect]
     Indication: COLON CANCER
     Dosage: 15 MG, QD
     Route: 048

REACTIONS (3)
  - COLON CANCER [None]
  - OFF LABEL USE [None]
  - INCORRECT DRUG ADMINISTRATION DURATION [None]
